FAERS Safety Report 10740074 (Version 1)
Quarter: 2015Q1

REPORT INFORMATION
  Report Type: Spontaneous
  Country: US (occurrence: US)
  Receive Date: 20150127
  Receipt Date: 20150127
  Transmission Date: 20150721
  Serious: Yes (Life-Threatening, Hospitalization)
  Sender: FDA-Public Use
  Company Number: US-JNJFOC-20150111213

PATIENT
  Age: 89 Year
  Sex: Female

DRUGS (2)
  1. PARACETAMOL [Suspect]
     Active Substance: ACETAMINOPHEN
     Route: 048
  2. PARACETAMOL [Suspect]
     Active Substance: ACETAMINOPHEN
     Indication: PRODUCT USED FOR UNKNOWN INDICATION
     Dosage: ABOUT 23 TABS OVER ABOUT 24 TO 48 HOURS 11.5 GRAMS
     Route: 048
     Dates: start: 20110328, end: 20110329

REACTIONS (5)
  - Hepatic failure [Not Recovered/Not Resolved]
  - Accidental overdose [Not Recovered/Not Resolved]
  - Dehydration [Unknown]
  - Renal failure [Not Recovered/Not Resolved]
  - Cardiac failure [Not Recovered/Not Resolved]

NARRATIVE: CASE EVENT DATE: 20110328
